FAERS Safety Report 26075058 (Version 1)
Quarter: 2025Q4

REPORT INFORMATION
  Report Type: Spontaneous
  Country: US (occurrence: None)
  Receive Date: 20251120
  Receipt Date: 20251120
  Transmission Date: 20260118
  Serious: Yes (Life-Threatening, Hospitalization)
  Sender: FDA-CTU
  Company Number: None

PATIENT
  Age: 33 Year
  Sex: Female
  Weight: 55.8 kg

DRUGS (3)
  1. RINVOQ [Suspect]
     Active Substance: UPADACITINIB
     Indication: Colitis ulcerative
     Dosage: FREQUENCY : DAILY;?
     Route: 048
     Dates: start: 20250701, end: 20251020
  2. TREMFYA [Suspect]
     Active Substance: GUSELKUMAB
  3. Ortho-Novum 1-35 daily [Concomitant]

REACTIONS (5)
  - Fatigue [None]
  - Drug intolerance [None]
  - Therapy interrupted [None]
  - Visual impairment [None]
  - Hypoaesthesia [None]

NARRATIVE: CASE EVENT DATE: 20251020
